FAERS Safety Report 17811754 (Version 1)
Quarter: 2020Q2

REPORT INFORMATION
  Report Type: Spontaneous
  Country: FR (occurrence: FR)
  Receive Date: 20200521
  Receipt Date: 20200521
  Transmission Date: 20200714
  Serious: Yes (Other)
  Sender: FDA-Public Use
  Company Number: None

PATIENT
  Age: 34 Year
  Sex: Female
  Weight: 60 kg

DRUGS (7)
  1. LAMICTAL [Suspect]
     Active Substance: LAMOTRIGINE
     Indication: DEPRESSION
     Dosage: ?          QUANTITY:1 TABLET(S);?
     Route: 048
  2. B6 [Concomitant]
     Active Substance: PYRIDOXINE HYDROCHLORIDE
  3. CALCIUM [Concomitant]
     Active Substance: CALCIUM
  4. MAGNESIUM [Concomitant]
     Active Substance: MAGNESIUM
  5. TRYPTOPHANE [Concomitant]
  6. LAMICTAL [Suspect]
     Active Substance: LAMOTRIGINE
     Indication: PREMENSTRUAL DYSPHORIC DISORDER
     Dosage: ?          QUANTITY:1 TABLET(S);?
     Route: 048
  7. CBD [Concomitant]
     Active Substance: CANNABIDIOL

REACTIONS (3)
  - Renal disorder [None]
  - Decreased appetite [None]
  - Alopecia [None]

NARRATIVE: CASE EVENT DATE: 20170108
